FAERS Safety Report 15776529 (Version 1)
Quarter: 2018Q4

REPORT INFORMATION
  Report Type: Spontaneous
  Country: RS (occurrence: RS)
  Receive Date: 20181231
  Receipt Date: 20181231
  Transmission Date: 20190205
  Serious: Yes (Hospitalization, Other)
  Sender: FDA-Public Use
  Company Number: RS-ASTELLAS-2018US054965

PATIENT

DRUGS (9)
  1. TACROLIMUS. [Suspect]
     Active Substance: TACROLIMUS
     Indication: RENAL TRANSPLANT
     Dosage: UNK UNK, UNKNOWN FREQ. (0.15 MG/KGTT)
     Route: 065
  2. MYCOPHENOLATE MOFETIL. [Suspect]
     Active Substance: MYCOPHENOLATE MOFETIL
     Route: 065
  3. ANTITHYMOCYTE IMMUNOGLOBULIN (RABBIT) [Concomitant]
     Active Substance: LAPINE T-LYMPHOCYTE IMMUNE GLOBULIN
     Indication: RENAL TRANSPLANT
     Dosage: UNK UNK, UNKNOWN FREQ. (7 MG/KGTT AT TRANSPLANTION DAY)
     Route: 065
  4. MYCOPHENOLATE MOFETIL. [Suspect]
     Active Substance: MYCOPHENOLATE MOFETIL
     Indication: RENAL TRANSPLANT
     Route: 065
  5. ANTITHYMOCYTE IMMUNOGLOBULIN (RABBIT) [Concomitant]
     Active Substance: LAPINE T-LYMPHOCYTE IMMUNE GLOBULIN
     Dosage: UNK, UNKNOWN FREQ. (4 MG/KGTT ON DAY 1AND 2 POST-TRANSPLANT)
  6. TACROLIMUS. [Suspect]
     Active Substance: TACROLIMUS
     Dosage: UNK UNK, UNKNOWN FREQ.
     Route: 065
  7. RITUXIMAB. [Suspect]
     Active Substance: RITUXIMAB
     Indication: DIFFUSE LARGE B-CELL LYMPHOMA
     Route: 065
  8. MYCOPHENOLATE MOFETIL. [Suspect]
     Active Substance: MYCOPHENOLATE MOFETIL
     Dosage: UNK UNK, ONCE DAILY (DOSE REDUCTION)
     Route: 065
  9. TACROLIMUS. [Suspect]
     Active Substance: TACROLIMUS
     Route: 065

REACTIONS (6)
  - Anaemia [Unknown]
  - Post transplant lymphoproliferative disorder [Recovered/Resolved]
  - Epstein-Barr virus infection [Recovered/Resolved]
  - Leukopenia [Unknown]
  - Oesophageal stenosis [Not Recovered/Not Resolved]
  - Diffuse large B-cell lymphoma [Recovered/Resolved]
